FAERS Safety Report 8908617 (Version 2)
Quarter: 2012Q4

REPORT INFORMATION
  Report Type: 
  Country: JP (occurrence: JP)
  Receive Date: 20121114
  Receipt Date: 20121226
  Transmission Date: 20130627
  Serious: Yes (Other)
  Sender: FDA-Public Use
  Company Number: PHHY2012JP104397

PATIENT
  Age: 8 Year
  Sex: Female

DRUGS (1)
  1. TEGRETOL [Suspect]
     Dosage: UNK
     Route: 048
     Dates: start: 201210

REACTIONS (3)
  - Encephalopathy [Unknown]
  - Hepatic function abnormal [Unknown]
  - Allergy test positive [Unknown]
